APPROVED DRUG PRODUCT: THEOPHYLLINE
Active Ingredient: THEOPHYLLINE
Strength: 100MG
Dosage Form/Route: CAPSULE;ORAL
Application: A085263 | Product #001
Applicant: KV PHARMACEUTICAL CO
Approved: Approved Prior to Jan 1, 1982 | RLD: No | RS: No | Type: DISCN